FAERS Safety Report 12479716 (Version 3)
Quarter: 2016Q4

REPORT INFORMATION
  Report Type: Spontaneous
  Country: US (occurrence: US)
  Receive Date: 20160620
  Receipt Date: 20161213
  Transmission Date: 20170207
  Serious: No
  Sender: FDA-Public Use
  Company Number: US-PFIZER INC-2016302547

PATIENT
  Age: 61 Year
  Sex: Female

DRUGS (9)
  1. OMEPRAZOLE. [Concomitant]
     Active Substance: OMEPRAZOLE
     Indication: STRESS ULCER
     Dosage: UNK
  2. SULFASALAZINE. [Concomitant]
     Active Substance: SULFASALAZINE
  3. XELJANZ XR [Suspect]
     Active Substance: TOFACITINIB CITRATE
     Indication: RHEUMATOID ARTHRITIS
     Dosage: 11 MG, DAILY
     Route: 048
     Dates: end: 201611
  4. TAGAMET [Concomitant]
     Active Substance: CIMETIDINE
     Indication: STRESS ULCER
     Dosage: UNK, AS NEEDED
  5. FERROUS SULFATE. [Concomitant]
     Active Substance: FERROUS SULFATE
  6. CALCIUM/VITAMIN D [Concomitant]
     Active Substance: CALCIUM\VITAMIN D
  7. FIBER [Concomitant]
     Active Substance: PSYLLIUM HUSK
  8. METHOTREXATE. [Concomitant]
     Active Substance: METHOTREXATE
  9. FOLIC ACID. [Concomitant]
     Active Substance: FOLIC ACID

REACTIONS (6)
  - Productive cough [Unknown]
  - Hepatic enzyme increased [Unknown]
  - Fatigue [Unknown]
  - Headache [Unknown]
  - Dyspnoea [Unknown]
  - Abdominal pain upper [Unknown]

NARRATIVE: CASE EVENT DATE: 201610
